FAERS Safety Report 13620696 (Version 1)
Quarter: 2017Q2

REPORT INFORMATION
  Report Type: Spontaneous
  Country: US (occurrence: US)
  Receive Date: 20170607
  Receipt Date: 20170607
  Transmission Date: 20170830
  Serious: Yes (Death, Hospitalization)
  Sender: FDA-Public Use
  Company Number: US-KERYX BIOPHARMACEUTICALS INC.-2017US002926

PATIENT
  Sex: Female

DRUGS (1)
  1. AURYXIA [Suspect]
     Active Substance: TETRAFERRIC TRICITRATE DECAHYDRATE
     Indication: HYPERPHOSPHATAEMIA
     Dosage: 4 G (4 TABLETS), DAILY
     Route: 048
     Dates: start: 20170117

REACTIONS (3)
  - Cardiac arrest [Fatal]
  - Vascular access site haemorrhage [Fatal]
  - Brain hypoxia [Fatal]
